FAERS Safety Report 14256183 (Version 1)
Quarter: 2017Q4

REPORT INFORMATION
  Report Type: Spontaneous
  Country: JP (occurrence: JP)
  Receive Date: 20171206
  Receipt Date: 20171206
  Transmission Date: 20180321
  Serious: Yes (Death)
  Sender: FDA-Public Use
  Company Number: JP-BAYER-2017-236625

PATIENT
  Age: 71 Year
  Sex: Female

DRUGS (1)
  1. IOPROMIDE [Suspect]
     Active Substance: IOPROMIDE
     Indication: AORTIC DISSECTION
     Dosage: 80 ML, ONCE
     Route: 042
     Dates: start: 20171130, end: 20171130

REACTIONS (1)
  - Blood pressure decreased [Fatal]

NARRATIVE: CASE EVENT DATE: 20171130
